FAERS Safety Report 11885659 (Version 3)
Quarter: 2016Q2

REPORT INFORMATION
  Report Type: Spontaneous
  Country: FR (occurrence: FR)
  Receive Date: 20160104
  Receipt Date: 20160413
  Transmission Date: 20160815
  Serious: Yes (Other)
  Sender: FDA-Public Use
  Company Number: FR-PFIZER INC-2015478248

PATIENT
  Age: 58 Year
  Sex: Female

DRUGS (8)
  1. LANZOR [Concomitant]
     Active Substance: LANSOPRAZOLE
     Dosage: UNK
  2. AMAREL [Concomitant]
     Active Substance: GLIMEPIRIDE
     Dosage: 1 MG, UNK
     Dates: start: 2013
  3. ZOLOFT [Suspect]
     Active Substance: SERTRALINE HYDROCHLORIDE
     Indication: DEPRESSION
     Dosage: 50 MG, 2X/DAY
     Dates: start: 2000
  4. ZOLOFT [Suspect]
     Active Substance: SERTRALINE HYDROCHLORIDE
     Indication: ANXIETY
     Dosage: 100 MG (4 CAPSULES OF 25 MG), IN MORNING
  5. LIPANTHYL [Concomitant]
     Active Substance: FENOFIBRATE
     Indication: BLOOD CHOLESTEROL
     Dosage: 160 MG, UNK
     Dates: start: 1993
  6. MOTILIUM [Concomitant]
     Active Substance: DOMPERIDONE
     Dosage: 100 MG, 1X/DAY (4 - 25MG CAPSULES IN THE MORNING)
     Dates: start: 2000
  7. BIPRETERAX [Concomitant]
     Active Substance: INDAPAMIDE\PERINDOPRIL
     Dosage: 5 MG/1.25 MG, UNK
     Dates: start: 2003
  8. STILNOX [Concomitant]
     Active Substance: ZOLPIDEM TARTRATE
     Dosage: UNK
     Dates: start: 2010

REACTIONS (5)
  - Drug ineffective [Unknown]
  - Malaise [Unknown]
  - Suicidal ideation [Unknown]
  - Choking [Unknown]
  - Depression [Unknown]
